FAERS Safety Report 18456320 (Version 6)
Quarter: 2021Q3

REPORT INFORMATION
  Report Type: Other
  Country: DE (occurrence: DE)
  Receive Date: 20201103
  Receipt Date: 20210927
  Transmission Date: 20211014
  Serious: No
  Sender: FDA-Public Use
  Company Number: DE-ROCHE-2707219

PATIENT
  Age: 45 Year
  Sex: Female

DRUGS (4)
  1. OCREVUS [Suspect]
     Active Substance: OCRELIZUMAB
     Dosage: SECOND INITIAL DOSE
     Route: 042
     Dates: start: 20201109
  2. OCREVUS [Suspect]
     Active Substance: OCRELIZUMAB
     Route: 042
     Dates: start: 20210426
  3. SPIKEVAX [Suspect]
     Active Substance: CX-024414
     Indication: COVID-19 PROPHYLAXIS
     Route: 065
     Dates: start: 20210810, end: 20210810
  4. OCREVUS [Suspect]
     Active Substance: OCRELIZUMAB
     Indication: RELAPSING-REMITTING MULTIPLE SCLEROSIS
     Route: 042
     Dates: start: 20201026

REACTIONS (6)
  - Herpes zoster [Unknown]
  - Pyrexia [Recovered/Resolved]
  - Cardiovascular disorder [Recovered/Resolved]
  - Fatigue [Recovered/Resolved]
  - General physical health deterioration [Recovered/Resolved]
  - Nasopharyngitis [Recovered/Resolved]

NARRATIVE: CASE EVENT DATE: 20201026
